FAERS Safety Report 6323690-5 (Version None)
Quarter: 2009Q3

REPORT INFORMATION
  Report Type: 
  Country: None (occurrence: None)
  Receive Date: 20090824
  Receipt Date: 20090608
  Transmission Date: 20100115
  Serious: No
  Sender: FDA-Public Use
  Company Number: US-ABBOTT-09P-163-0578571-00

PATIENT
  Sex: Male

DRUGS (10)
  1. NIASPAN [Suspect]
     Indication: BLOOD TRIGLYCERIDES INCREASED
     Dosage: AT BEDTIME
     Route: 048
     Dates: start: 20090501
  2. METFORMIN HCL [Concomitant]
     Indication: DRUG USE FOR UNKNOWN INDICATION
     Route: 048
  3. GLIPIZIDE [Concomitant]
     Indication: DRUG USE FOR UNKNOWN INDICATION
     Route: 048
  4. NEXIUM [Concomitant]
     Indication: DRUG USE FOR UNKNOWN INDICATION
  5. PEPCID AC [Concomitant]
     Indication: DRUG USE FOR UNKNOWN INDICATION
  6. ARAVA [Concomitant]
     Indication: DRUG USE FOR UNKNOWN INDICATION
  7. HYDROCODONE [Concomitant]
     Indication: DRUG USE FOR UNKNOWN INDICATION
  8. FISH OIL [Concomitant]
     Indication: DRUG USE FOR UNKNOWN INDICATION
  9. COD LIVER [Concomitant]
     Indication: DRUG USE FOR UNKNOWN INDICATION
  10. FOLIC ACID [Concomitant]
     Indication: DRUG USE FOR UNKNOWN INDICATION

REACTIONS (2)
  - FLUSHING [None]
  - PRURITUS [None]
